FAERS Safety Report 9420516 (Version 1)
Quarter: 2013Q3

REPORT INFORMATION
  Report Type: Spontaneous
  Country: US (occurrence: US)
  Receive Date: 20130725
  Receipt Date: 20130725
  Transmission Date: 20140515
  Serious: No
  Sender: FDA-Public Use
  Company Number: US-ABBOTT-13P-163-1058786-00

PATIENT
  Sex: Male
  Weight: 86.26 kg

DRUGS (1)
  1. SYNTHROID [Suspect]
     Indication: HYPOTHYROIDISM
     Dates: start: 2007, end: 20130214

REACTIONS (13)
  - Rhinorrhoea [Recovering/Resolving]
  - Tongue biting [Recovered/Resolved]
  - Dysarthria [Recovering/Resolving]
  - Heart rate increased [Recovered/Resolved]
  - Choking sensation [Recovered/Resolved]
  - Rash papular [Not Recovered/Not Resolved]
  - Pruritus [Recovered/Resolved]
  - Dyspnoea [Recovered/Resolved]
  - Choking sensation [Recovered/Resolved]
  - Dry skin [Not Recovered/Not Resolved]
  - Dizziness [Recovered/Resolved]
  - Productive cough [Not Recovered/Not Resolved]
  - Productive cough [Recovering/Resolving]
